FAERS Safety Report 7216371-7 (Version None)
Quarter: 2011Q1

REPORT INFORMATION
  Report Type: 
  Country: None (occurrence: None)
  Receive Date: 20110105
  Receipt Date: 20110105
  Transmission Date: 20110831
  Serious: Yes (Life-Threatening, Disabling, Other)
  Sender: FDA-Public Use
  Company Number: None

PATIENT
  Sex: Female
  Weight: 55.3388 kg

DRUGS (1)
  1. ACTONEL [Suspect]
     Indication: OSTEOPOROSIS
     Dosage: 150 MG ONE DAY PER MONTH ORALLY
     Route: 048
     Dates: start: 20090417, end: 20100917

REACTIONS (3)
  - ABDOMINAL DISCOMFORT [None]
  - ERUCTATION [None]
  - DYSPEPSIA [None]
